FAERS Safety Report 7030732-0 (Version None)
Quarter: 2010Q4

REPORT INFORMATION
  Report Type: 
  Country: None (occurrence: None)
  Receive Date: 20101006
  Receipt Date: 20100930
  Transmission Date: 20110411
  Serious: Yes (Death)
  Sender: FDA-Public Use
  Company Number: US-CELGENEUS-163-20785-10081065

PATIENT
  Sex: Male

DRUGS (8)
  1. THALOMID [Suspect]
     Indication: MULTIPLE MYELOMA
     Route: 048
     Dates: start: 20080510, end: 20090501
  2. THALOMID [Suspect]
     Route: 048
     Dates: start: 20090531, end: 20091201
  3. THALOMID [Suspect]
     Route: 048
     Dates: start: 20091230
  4. VELCADE [Concomitant]
     Indication: MULTIPLE MYELOMA
     Route: 065
     Dates: start: 20100317, end: 20100418
  5. ZOMETA [Concomitant]
     Indication: MULTIPLE MYELOMA
     Route: 065
  6. DECADRON [Concomitant]
     Indication: PRODUCT USED FOR UNKNOWN INDICATION
     Route: 065
  7. ALKERAN [Concomitant]
     Indication: PRODUCT USED FOR UNKNOWN INDICATION
     Route: 065
     Dates: start: 20080225
  8. PREDNISONE [Concomitant]
     Indication: PRODUCT USED FOR UNKNOWN INDICATION
     Route: 065
     Dates: start: 20080225

REACTIONS (5)
  - MALIGNANT NEOPLASM PROGRESSION [None]
  - MULTIPLE MYELOMA [None]
  - NEURALGIA [None]
  - PANCREATIC CARCINOMA [None]
  - SPINAL CORD COMPRESSION [None]
